FAERS Safety Report 9714340 (Version 1)
Quarter: 2013Q4

REPORT INFORMATION
  Report Type: Spontaneous
  Country: US (occurrence: US)
  Receive Date: 20131126
  Receipt Date: 20131126
  Transmission Date: 20140711
  Serious: Yes (Other)
  Sender: FDA-Public Use
  Company Number: US-PFIZER INC-2013336513

PATIENT
  Sex: Female

DRUGS (1)
  1. XANAX [Suspect]
     Indication: STRESS
     Dosage: UNK

REACTIONS (3)
  - Suicide attempt [Unknown]
  - Panic attack [Unknown]
  - Off label use [Unknown]
